FAERS Safety Report 4425672-7 (Version None)
Quarter: 2004Q3

REPORT INFORMATION
  Report Type: 
  Country: None (occurrence: None)
  Receive Date: 20040719
  Receipt Date: 20040406
  Transmission Date: 20050211
  Serious: No
  Sender: FDA-Public Use
  Company Number: A03200401065

PATIENT
  Sex: Female

DRUGS (2)
  1. UROXATRAL [Suspect]
     Indication: URINARY RETENTION
     Dosage: 10 MG OD - ORAL
     Route: 048
     Dates: start: 20040202
  2. LEVOTHYROXINE SODIUM [Concomitant]

REACTIONS (4)
  - FATIGUE [None]
  - MUSCULAR WEAKNESS [None]
  - ORTHOSTATIC HYPOTENSION [None]
  - TEMPERATURE INTOLERANCE [None]
